FAERS Safety Report 5493327-6 (Version None)
Quarter: 2007Q4

REPORT INFORMATION
  Report Type: 
  Country: None (occurrence: None)
  Receive Date: 20071023
  Receipt Date: 20070604
  Transmission Date: 20080405
  Serious: No
  Sender: FDA-Public Use
  Company Number: US-BRISTOL-MYERS SQUIBB COMPANY-13802467

PATIENT
  Age: 44 Year
  Sex: Female

DRUGS (1)
  1. KENALOG-40 [Suspect]
     Dates: start: 20070101

REACTIONS (1)
  - FEELING ABNORMAL [None]
